FAERS Safety Report 8240893-3 (Version None)
Quarter: 2012Q1

REPORT INFORMATION
  Report Type: 
  Country: None (occurrence: None)
  Receive Date: 20120328
  Receipt Date: 20120322
  Transmission Date: 20120608
  Serious: Yes (Death, Life-Threatening, Hospitalization, Other)
  Sender: FDA-Public Use
  Company Number: US-ELI_LILLY_AND_COMPANY-US201203006837

PATIENT
  Sex: Male

DRUGS (1)
  1. EFFIENT [Suspect]
     Indication: STENT PLACEMENT
     Dosage: UNK, UNKNOWN
     Dates: start: 20111101, end: 20120203

REACTIONS (7)
  - CEREBRAL HAEMORRHAGE [None]
  - DEATH [None]
  - URINARY BLADDER HAEMORRHAGE [None]
  - FALL [None]
  - CIRCULATORY COLLAPSE [None]
  - SURGERY [None]
  - YAWNING [None]
